FAERS Safety Report 13514916 (Version 1)
Quarter: 2017Q2

REPORT INFORMATION
  Report Type: Spontaneous
  Country: US (occurrence: US)
  Receive Date: 20170504
  Receipt Date: 20170504
  Transmission Date: 20170830
  Serious: Yes (Hospitalization, Other)
  Sender: FDA-Public Use
  Company Number: US-009507513-1705USA000459

PATIENT
  Age: 70 Year
  Sex: Male
  Weight: 140.9 kg

DRUGS (1)
  1. KEYTRUDA [Suspect]
     Active Substance: PEMBROLIZUMAB
     Indication: MALIGNANT MELANOMA
     Dosage: UNK, Q3W
     Route: 042
     Dates: start: 20170327

REACTIONS (2)
  - Lymphoedema [Unknown]
  - Wound infection [Unknown]

NARRATIVE: CASE EVENT DATE: 20170425
